FAERS Safety Report 11038570 (Version 1)
Quarter: 2015Q2

REPORT INFORMATION
  Report Type: Spontaneous
  Country: CA (occurrence: CA)
  Receive Date: 20150416
  Receipt Date: 20150416
  Transmission Date: 20150821
  Serious: Yes (Death, Other)
  Sender: FDA-Public Use
  Company Number: CA-GLAXOSMITHKLINE-A1090901A

PATIENT
  Age: 48 Year
  Sex: Female

DRUGS (1)
  1. TAFINLAR [Suspect]
     Active Substance: DABRAFENIB MESYLATE
     Indication: METASTATIC MALIGNANT MELANOMA
     Dosage: 300 MG, QD
     Route: 065

REACTIONS (4)
  - Mass [Unknown]
  - Cough [Unknown]
  - Death [Fatal]
  - Dry mouth [Unknown]

NARRATIVE: CASE EVENT DATE: 201409
